FAERS Safety Report 15788997 (Version 4)
Quarter: 2020Q1

REPORT INFORMATION
  Report Type: Report from Study
  Country: GB (occurrence: GB)
  Receive Date: 20190104
  Receipt Date: 20200106
  Transmission Date: 20200409
  Serious: Yes (Other)
  Sender: FDA-Public Use
  Company Number: PHHY2015GB123296

PATIENT
  Age: 47 Year
  Sex: Female

DRUGS (1)
  1. GILENYA [Suspect]
     Active Substance: FINGOLIMOD HYDROCHLORIDE
     Indication: MULTIPLE SCLEROSIS
     Dosage: UNK, QD
     Route: 048
     Dates: start: 20140710, end: 201502

REACTIONS (12)
  - Paraesthesia [Unknown]
  - Hypoaesthesia [Unknown]
  - Retinal cyst [Recovered/Resolved]
  - Balance disorder [Unknown]
  - Lymphocyte count decreased [Unknown]
  - Neuralgia [Unknown]
  - Malaise [Unknown]
  - Urinary tract infection [Unknown]
  - Osteopenia [Unknown]
  - Lymphadenitis bacterial [Recovered/Resolved]
  - Asthenia [Unknown]
  - Fall [Unknown]

NARRATIVE: CASE EVENT DATE: 20150218
